FAERS Safety Report 7068563-8 (Version None)
Quarter: 2010Q4

REPORT INFORMATION
  Report Type: 
  Country: None (occurrence: None)
  Receive Date: 20101027
  Receipt Date: 20101027
  Transmission Date: 20110411
  Serious: Yes (Other)
  Sender: FDA-Public Use
  Company Number: None

PATIENT
  Age: 4 Year
  Sex: Female
  Weight: 17.6903 kg

DRUGS (1)
  1. SINGULAIR [Suspect]
     Indication: MULTIPLE ALLERGIES
     Dosage: 5MG ONCE A DAY
     Dates: start: 20100710, end: 20101014

REACTIONS (14)
  - ABNORMAL BEHAVIOUR [None]
  - ANXIETY [None]
  - CONDITION AGGRAVATED [None]
  - CYSTITIS [None]
  - FEAR [None]
  - FOOD ALLERGY [None]
  - GASTRIC DISORDER [None]
  - HAEMATEMESIS [None]
  - INSOMNIA [None]
  - NAUSEA [None]
  - OESOPHAGITIS [None]
  - PAIN [None]
  - PARAESTHESIA [None]
  - TREMOR [None]
